FAERS Safety Report 6313823-9 (Version None)
Quarter: 2009Q3

REPORT INFORMATION
  Report Type: 
  Country: None (occurrence: None)
  Receive Date: 20090818
  Receipt Date: 20090814
  Transmission Date: 20100115
  Serious: Yes (Hospitalization, Other)
  Sender: FDA-Public Use
  Company Number: GB-WYE-G04230709

PATIENT
  Sex: Male

DRUGS (8)
  1. GEMTUZUMAB OZOGAMICIN [Suspect]
     Indication: ACUTE MYELOID LEUKAEMIA
     Dosage: UNKNOWN
     Dates: start: 20090505, end: 20090514
  2. GEMTUZUMAB OZOGAMICIN [Suspect]
     Dosage: UNKNOWN
     Dates: start: 20090605, end: 20090614
  3. AMILORIDE HYDROCHLORIDE [Concomitant]
     Indication: HYPERTENSION
     Route: 048
  4. SIMVASTATIN [Concomitant]
     Indication: BLOOD CHOLESTEROL ABNORMAL
     Route: 048
  5. BISOPROLOL [Concomitant]
     Route: 048
  6. ARA-C [Concomitant]
     Dosage: UNKNOWN
     Dates: start: 20090505, end: 20090514
  7. ARA-C [Concomitant]
     Dosage: UNKNOWN
     Dates: start: 20090605, end: 20090605
  8. ALLOPURINOL [Concomitant]
     Indication: GOUT
     Route: 048

REACTIONS (7)
  - ATRIOVENTRICULAR BLOCK COMPLETE [None]
  - HAEMATOMA [None]
  - LEAD DISLODGEMENT [None]
  - MEDICAL DEVICE COMPLICATION [None]
  - PNEUMOTHORAX [None]
  - WEIGHT DECREASED [None]
  - WOUND INFECTION [None]
